FAERS Safety Report 25933543 (Version 1)
Quarter: 2025Q4

REPORT INFORMATION
  Report Type: Spontaneous
  Country: GB (occurrence: GB)
  Receive Date: 20251017
  Receipt Date: 20251017
  Transmission Date: 20260118
  Serious: Yes (Hospitalization)
  Sender: SUNOVION
  Company Number: GB-Accord-508863

PATIENT
  Age: 97 Year
  Sex: Male

DRUGS (5)
  1. ORGOVYX [Suspect]
     Active Substance: RELUGOLIX
     Indication: Prostatic specific antigen increased
     Dosage: STARTED FROM APPROX 04-SEP-2025; FOR A MONTHFREQUENCY: DAILY
     Route: 048
     Dates: start: 202509, end: 20251004
  2. AMITRIPTYLINE [Concomitant]
     Active Substance: AMITRIPTYLINE
     Dosage: STRENGTH: 10 MGFREQUENCY: ONCE DAILY
     Route: 048
     Dates: start: 20220926
  3. OMEPRAZOLE [Concomitant]
     Active Substance: OMEPRAZOLE
     Dosage: STRENGTH: 20 MGFREQUENCY: ONCE DAILY
     Route: 048
     Dates: start: 20090126
  4. APIXABAN [Concomitant]
     Active Substance: APIXABAN
     Dosage: STRENGTH: 2.5MGFREQUENCY: TWICE DAILY
     Route: 048
     Dates: start: 20220407
  5. POLYETHYLENE GLYCOL 3350\POTASSIUM CHLORIDE\SODIUM BICARBONATE\SODIUM [Concomitant]
     Active Substance: POLYETHYLENE GLYCOL 3350\POTASSIUM CHLORIDE\SODIUM BICARBONATE\SODIUM CHLORIDE
     Dosage: SACHET
     Route: 048

REACTIONS (3)
  - Dyspnoea [Recovering/Resolving]
  - Heart rate irregular [Unknown]
  - Fatigue [Recovering/Resolving]

NARRATIVE: CASE EVENT DATE: 20250101
